FAERS Safety Report 6836150-X (Version None)
Quarter: 2010Q3

REPORT INFORMATION
  Report Type: 
  Country: None (occurrence: None)
  Receive Date: 20100712
  Receipt Date: 20100712
  Transmission Date: 20110219
  Serious: Yes (Hospitalization)
  Sender: FDA-Public Use
  Company Number: None

PATIENT
  Age: 60 Year
  Sex: Female
  Weight: 90.7194 kg

DRUGS (6)
  1. VORINOSTAT [Suspect]
     Indication: LEIOMYOSARCOMA
     Dosage: 400MG PO QD
     Route: 048
     Dates: start: 20100706, end: 20100707
  2. HYDROXYCHLOROQUINE SULFATE [Suspect]
     Dosage: 400MG PO QD
     Route: 048
     Dates: start: 20100706, end: 20100707
  3. ZESTORETIC [Concomitant]
  4. LANTUS [Concomitant]
  5. PROTONIX [Concomitant]
  6. HYDROMORPHONE [Concomitant]

REACTIONS (3)
  - CHEST DISCOMFORT [None]
  - CHEST PAIN [None]
  - DYSPNOEA [None]
